FAERS Safety Report 17142766 (Version 10)
Quarter: 2020Q2

REPORT INFORMATION
  Report Type: Spontaneous
  Country: US (occurrence: US)
  Receive Date: 20191211
  Receipt Date: 20200504
  Transmission Date: 20200713
  Serious: Yes (Congenital Anomaly, Other)
  Sender: FDA-Public Use
  Company Number: NVSC2019US064431

PATIENT
  Age: 0 Day
  Sex: Female

DRUGS (3)
  1. ONDANSETRON HYDROCHLORIDE. [Suspect]
     Active Substance: ONDANSETRON HYDROCHLORIDE
     Indication: FOETAL EXPOSURE DURING PREGNANCY
     Dosage: MOTHER DOSE: 04 MG, Q6H
     Route: 064
  2. ONDANSETRON. [Suspect]
     Active Substance: ONDANSETRON
     Indication: FOETAL EXPOSURE DURING PREGNANCY
     Dosage: MOTHER DOSE: 1 DF, Q6H
     Route: 064
  3. ZOFRAN ODT [Suspect]
     Active Substance: ONDANSETRON HYDROCHLORIDE
     Indication: FOETAL EXPOSURE DURING PREGNANCY
     Dosage: MOTHER DOSE: 01 DF, Q6H
     Route: 064

REACTIONS (40)
  - Injury [Unknown]
  - Emotional distress [Unknown]
  - Pulmonary valve stenosis congenital [Unknown]
  - Epilepsy [Unknown]
  - Encephalopathy [Unknown]
  - Anxiety [Unknown]
  - Dermatitis [Unknown]
  - Decreased appetite [Unknown]
  - Abdominal pain [Unknown]
  - Headache [Unknown]
  - Microcephaly [Unknown]
  - Head injury [Unknown]
  - Dermatitis diaper [Unknown]
  - Upper respiratory tract infection [Unknown]
  - Constipation [Unknown]
  - Heart disease congenital [Unknown]
  - Respiratory distress [Unknown]
  - Seizure [Unknown]
  - Dyspnoea [Unknown]
  - Fall [Unknown]
  - Skin papilloma [Unknown]
  - Concussion [Unknown]
  - Pulmonary artery stenosis congenital [Unknown]
  - Jaundice neonatal [Unknown]
  - Cardiac murmur [Unknown]
  - Grunting [Unknown]
  - Encopresis [Unknown]
  - Atrial septal defect [Unknown]
  - Sepsis neonatal [Unknown]
  - Premature baby [Unknown]
  - Foetal exposure during pregnancy [Unknown]
  - Abdominal distension [Unknown]
  - Vomiting [Unknown]
  - Cough [Unknown]
  - Developmental delay [Unknown]
  - Speech disorder [Unknown]
  - Language disorder [Unknown]
  - Lactose intolerance [Unknown]
  - Affective disorder [Unknown]
  - Sensory processing disorder [Unknown]

NARRATIVE: CASE EVENT DATE: 20111203
